FAERS Safety Report 7596921 (Version 4)
Quarter: 2013Q3

REPORT INFORMATION
  Report Type: Spontaneous
  Country: US (occurrence: US)
  Receive Date: 20100920
  Receipt Date: 20130920
  Transmission Date: 20140515
  Serious: Yes (Hospitalization, Disabling, Other)
  Sender: FDA-Public Use
  Company Number: US-ASTRAZENECA-2010SE21692

PATIENT
  Age: 53 Year
  Sex: Female
  Weight: 102.5 kg

DRUGS (18)
  1. SEROQUEL [Suspect]
     Indication: AFFECTIVE DISORDER
     Route: 048
  2. SEROQUEL [Suspect]
     Indication: BIPOLAR DISORDER
     Route: 048
  3. SEROQUEL [Suspect]
     Indication: POST-TRAUMATIC STRESS DISORDER
     Route: 048
  4. SEROQUEL [Suspect]
     Indication: SLEEP DISORDER
     Route: 048
  5. SEROQUEL [Suspect]
     Indication: EMOTIONAL DISORDER
     Route: 048
  6. SEROQUEL [Suspect]
     Indication: CRYING
     Route: 048
  7. SEROQUEL [Suspect]
     Indication: AFFECTIVE DISORDER
     Route: 048
     Dates: start: 2007
  8. SEROQUEL [Suspect]
     Indication: BIPOLAR DISORDER
     Route: 048
     Dates: start: 2007
  9. SEROQUEL [Suspect]
     Indication: POST-TRAUMATIC STRESS DISORDER
     Route: 048
     Dates: start: 2007
  10. SEROQUEL [Suspect]
     Indication: SLEEP DISORDER
     Route: 048
     Dates: start: 2007
  11. SEROQUEL [Suspect]
     Indication: EMOTIONAL DISORDER
     Route: 048
     Dates: start: 2007
  12. SEROQUEL [Suspect]
     Indication: CRYING
     Route: 048
     Dates: start: 2007
  13. SEROQUEL [Suspect]
     Indication: AFFECTIVE DISORDER
     Route: 048
     Dates: start: 2007
  14. SEROQUEL [Suspect]
     Indication: BIPOLAR DISORDER
     Route: 048
     Dates: start: 2007
  15. SEROQUEL [Suspect]
     Indication: POST-TRAUMATIC STRESS DISORDER
     Route: 048
     Dates: start: 2007
  16. SEROQUEL [Suspect]
     Indication: SLEEP DISORDER
     Route: 048
     Dates: start: 2007
  17. SEROQUEL [Suspect]
     Indication: EMOTIONAL DISORDER
     Route: 048
     Dates: start: 2007
  18. SEROQUEL [Suspect]
     Indication: CRYING
     Route: 048
     Dates: start: 2007

REACTIONS (19)
  - Suicidal ideation [Unknown]
  - Gait disturbance [Unknown]
  - Dysstasia [Unknown]
  - Insomnia [Unknown]
  - Logorrhoea [Unknown]
  - Cognitive disorder [Unknown]
  - Malaise [Unknown]
  - Affect lability [Unknown]
  - Crying [Unknown]
  - Mood swings [Unknown]
  - Mania [Unknown]
  - Amnesia [Unknown]
  - Decreased appetite [Unknown]
  - Depression [Unknown]
  - Tachyphrenia [Unknown]
  - Dysphagia [Unknown]
  - Drug ineffective [Unknown]
  - Intentional drug misuse [Unknown]
  - Drug dose omission [Unknown]
